FAERS Safety Report 5003980-9 (Version None)
Quarter: 2006Q2

REPORT INFORMATION
  Report Type: 
  Country: None (occurrence: None)
  Receive Date: 20060517
  Receipt Date: 20060502
  Transmission Date: 20061013
  Serious: Yes (Other)
  Sender: FDA-Public Use
  Company Number: PT-AMGEN-UK178473

PATIENT
  Sex: Female
  Weight: 35 kg

DRUGS (7)
  1. MIMPARA [Suspect]
     Indication: HYPERPARATHYROIDISM SECONDARY
     Route: 048
     Dates: start: 20050224
  2. ARANESP [Concomitant]
     Route: 042
     Dates: start: 20060101
  3. CARVEDILOL [Concomitant]
     Route: 048
     Dates: start: 20030101
  4. CAPTOPRIL [Concomitant]
     Route: 048
     Dates: start: 20000501
  5. RENAGEL [Concomitant]
     Route: 048
     Dates: start: 20031001
  6. FOLIC ACID [Concomitant]
     Route: 048
     Dates: start: 19990201
  7. ZEMPLAR [Concomitant]
     Route: 042
     Dates: start: 20050324

REACTIONS (3)
  - ABDOMINAL PAIN UPPER [None]
  - DYSPEPSIA [None]
  - VOMITING [None]
